FAERS Safety Report 11024334 (Version 2)
Quarter: 2015Q2

REPORT INFORMATION
  Report Type: Report from Study
  Country: IE (occurrence: IE)
  Receive Date: 20150414
  Receipt Date: 20150507
  Transmission Date: 20150821
  Serious: Yes (Death)
  Sender: FDA-Public Use
  Company Number: IE-AMGEN-IRLSL2015034753

PATIENT
  Age: 65 Year
  Sex: Male

DRUGS (1)
  1. NEULASTA [Suspect]
     Active Substance: PEGFILGRASTIM
     Indication: LYMPHOMA
     Dosage: 6MG/0.6ML POST CHEMO TWO WEEKLY
     Route: 058
     Dates: start: 20150212

REACTIONS (1)
  - Lymphoma [Fatal]
